FAERS Safety Report 6184691-3 (Version None)
Quarter: 2009Q2

REPORT INFORMATION
  Report Type: 
  Country: None (occurrence: None)
  Receive Date: 20090508
  Receipt Date: 20090506
  Transmission Date: 20091009
  Serious: Yes (Hospitalization)
  Sender: FDA-Public Use
  Company Number: US-AVENTIS-200910419US

PATIENT
  Sex: Female
  Weight: 72.7 kg

DRUGS (7)
  1. TAXOTERE [Suspect]
     Route: 042
     Dates: start: 20081124, end: 20081124
  2. TAXOTERE [Suspect]
     Route: 042
     Dates: start: 20081103, end: 20081103
  3. MAXZIDE [Concomitant]
     Dosage: DOSE: UNK
  4. CALTRATE                           /00108001/ [Concomitant]
     Dosage: DOSE: UNK
  5. ANTIVERT [Concomitant]
     Dosage: DOSE: UNK
  6. M.V.I. [Concomitant]
     Dosage: DOSE: UNK
  7. ATIVAN [Concomitant]
     Dosage: DOSE: UNK

REACTIONS (3)
  - DIAPHRAGMATIC PARALYSIS [None]
  - DYSPNOEA [None]
  - HYPOVENTILATION [None]
